FAERS Safety Report 7211356-9 (Version None)
Quarter: 2011Q1

REPORT INFORMATION
  Report Type: 
  Country: None (occurrence: None)
  Receive Date: 20110105
  Receipt Date: 20101228
  Transmission Date: 20110831
  Serious: Yes (Other)
  Sender: FDA-Public Use
  Company Number: US-JNJFOC-20070803038

PATIENT
  Sex: Female
  Weight: 100.25 kg

DRUGS (8)
  1. RISPERDAL [Suspect]
     Indication: PARANOIA
     Route: 065
  2. RISPERDAL [Suspect]
     Indication: POST-TRAUMATIC STRESS DISORDER
     Route: 065
  3. RISPERDAL [Suspect]
     Indication: DEPRESSION
     Route: 065
  4. RISPERDAL [Suspect]
     Indication: MANIA
     Route: 065
  5. RISPERDAL CONSTA [Suspect]
     Indication: PRODUCT USED FOR UNKNOWN INDICATION
     Route: 030
  6. RISPERDAL [Suspect]
     Indication: BIPOLAR DISORDER
     Route: 065
  7. RISPERDAL [Suspect]
     Indication: ANXIETY
     Route: 065
  8. RISPERDAL [Suspect]
     Indication: SCHIZOPHRENIA
     Route: 065

REACTIONS (4)
  - WEIGHT INCREASED [None]
  - DIABETES MELLITUS [None]
  - TARDIVE DYSKINESIA [None]
  - ABNORMAL BEHAVIOUR [None]
